FAERS Safety Report 10226364 (Version 1)
Quarter: 2014Q2

REPORT INFORMATION
  Report Type: Report from Study
  Country: US (occurrence: US)
  Receive Date: 20140609
  Receipt Date: 20140609
  Transmission Date: 20141212
  Serious: Yes (Death)
  Sender: FDA-Public Use
  Company Number: US-PFIZER INC-2014153126

PATIENT
  Age: 54 Year
  Sex: Female
  Weight: 120.1 kg

DRUGS (27)
  1. IBUPROFEN [Suspect]
     Indication: OSTEOARTHRITIS
     Dosage: 800 MG, 3X/DAY
     Route: 048
     Dates: start: 20130108
  2. IBUPROFEN [Suspect]
     Indication: RHEUMATOID ARTHRITIS
  3. NEXIUM [Concomitant]
     Indication: PROPHYLAXIS AGAINST GASTROINTESTINAL ULCER
     Dosage: MG, QD
     Route: 048
     Dates: start: 20130108
  4. VIT E [Concomitant]
     Indication: SUPPLEMENTATION THERAPY
     Dosage: 400 MG, 1X/DAY
     Route: 048
     Dates: start: 2012
  5. PANTOPRAZOLE [Concomitant]
     Indication: GASTROOESOPHAGEAL REFLUX DISEASE
     Dosage: 40 MG, 1X/DAY
     Route: 048
     Dates: start: 2008
  6. METHYLPHENIDATE [Concomitant]
     Indication: ANXIETY
     Dosage: 10 MG, 2X/DAY
     Route: 048
     Dates: start: 2012
  7. METFORMIN HYDROCHLORIDE [Concomitant]
     Indication: DIABETES MELLITUS
     Dosage: 1000 MG, 2X/DAY
     Route: 048
     Dates: start: 2000
  8. GLIMEPIRIDE [Concomitant]
     Indication: DIABETES MELLITUS
     Dosage: 2 MG, 1X/DAY
     Route: 048
     Dates: start: 201112
  9. CYMBALTA [Concomitant]
     Indication: ANXIETY
     Dosage: 60 MG, 1X/DAY
     Route: 048
     Dates: start: 201206
  10. ATORVASTATIN [Concomitant]
     Indication: HYPERCHOLESTEROLAEMIA
     Dosage: 40 MG, 1X/DAY
     Route: 048
     Dates: start: 2000
  11. ZETIA [Concomitant]
     Indication: HYPERCHOLESTEROLAEMIA
     Dosage: 10 MG, 1X/DAY
     Route: 048
     Dates: start: 2000
  12. PROAIR [Concomitant]
     Indication: BRONCHITIS CHRONIC
     Dosage: 90 UG, 4X/DAY; ROUTE - INH
     Route: 055
     Dates: start: 2000
  13. PROAIR [Concomitant]
     Indication: ASTHMA
  14. HUMULIN [Concomitant]
     Indication: DIABETES MELLITUS
     Dosage: 22 IU, QAM
     Route: 058
     Dates: start: 2011
  15. HUMULIN [Concomitant]
     Dosage: 8 IU, Q AFTERNOON
     Route: 058
     Dates: start: 2011
  16. HUMULIN [Concomitant]
     Dosage: 31 IU, QPM
     Route: 058
     Dates: start: 2011
  17. CALCIUM WITH VITAMIN D [Concomitant]
     Indication: OSTEOPOROSIS
     Dosage: 2 DF (TABS), 1X/DAY
     Route: 048
     Dates: start: 2011
  18. ATENOLOL [Concomitant]
     Indication: HYPERTENSION
     Dosage: 25 MG, 1X/DAY
     Route: 048
     Dates: start: 2003
  19. AMITIZA [Concomitant]
     Indication: CONSTIPATION
     Dosage: 24 UG, 2X/DAY
     Route: 048
     Dates: start: 2011
  20. COLACE [Concomitant]
     Indication: CONSTIPATION
     Dosage: 1 DF, AS NEEDED
     Route: 048
     Dates: start: 2002
  21. PRAMIPEXOLE [Concomitant]
     Indication: PSYCHOMOTOR HYPERACTIVITY
     Dosage: 0.25 MG, 1X/DAY
     Route: 048
     Dates: start: 201201
  22. RANITIDINE [Concomitant]
     Indication: GASTROOESOPHAGEAL REFLUX DISEASE
     Dosage: 150 MG, 1X/DAY
     Route: 048
     Dates: start: 2002
  23. POLYETHYLENE GLYCOL [Concomitant]
     Indication: CONSTIPATION
     Dosage: 1 DF (TBSP), 1X/DAY
     Route: 048
     Dates: start: 2000
  24. FUROSEMIDE [Concomitant]
     Indication: OEDEMA PERIPHERAL
     Dosage: 80 MG, 1X/DAY
     Route: 048
     Dates: start: 20130106
  25. HYDROXYZINE [Concomitant]
     Indication: ANXIETY
     Dosage: 50 MG, 1X/DAY
     Route: 048
     Dates: start: 20130102
  26. OXYCODONE [Concomitant]
     Indication: ARTHRALGIA
     Dosage: 10/ 325MG PRN
     Route: 048
     Dates: start: 20130906
  27. LYRICA [Concomitant]
     Indication: PAIN IN EXTREMITY
     Dosage: 150 MG, 2X/DAY
     Route: 048
     Dates: start: 20130906

REACTIONS (1)
  - Death [Fatal]
